FAERS Safety Report 11886426 (Version 1)
Quarter: 2016Q1

REPORT INFORMATION
  Report Type: Spontaneous
  Country: US (occurrence: US)
  Receive Date: 20160104
  Receipt Date: 20160104
  Transmission Date: 20160526
  Serious: Yes (Other)
  Sender: FDA-Public Use
  Company Number: US-BAYER-2015-496746

PATIENT
  Age: 30 Year
  Sex: Male

DRUGS (1)
  1. CIPRO [Suspect]
     Active Substance: CIPROFLOXACIN HYDROCHLORIDE
     Indication: URINARY TRACT INFECTION
     Dosage: 250 MG, BID
     Route: 048
     Dates: start: 20151215, end: 20151221

REACTIONS (8)
  - Dizziness [None]
  - Vitreous floaters [None]
  - Burning sensation [None]
  - Eye injury [None]
  - Colour blindness [None]
  - Muscle spasms [None]
  - Photopsia [None]
  - Crying [None]

NARRATIVE: CASE EVENT DATE: 20151217
